FAERS Safety Report 12766940 (Version 1)
Quarter: 2016Q3

REPORT INFORMATION
  Report Type: Spontaneous
  Country: HR (occurrence: HR)
  Receive Date: 20160921
  Receipt Date: 20160921
  Transmission Date: 20161109
  Serious: Yes (Hospitalization, Other)
  Sender: FDA-Public Use
  Company Number: HR-TEVA-693092ACC

PATIENT
  Age: 17 Year
  Sex: Female
  Weight: 50 kg

DRUGS (4)
  1. REGLAN [Suspect]
     Active Substance: METOCLOPRAMIDE HYDROCHLORIDE
     Route: 048
  2. RINOLAN [Suspect]
     Active Substance: LORATADINE
     Dosage: UNSPECIFIED FORMULATION
     Route: 048
  3. NORMABEL [Suspect]
     Active Substance: DIAZEPAM
     Route: 048
  4. ORMIDOL [Suspect]
     Active Substance: ATENOLOL
     Dosage: UNSPECIFIED FORMULATION
     Route: 048

REACTIONS (5)
  - Suicide attempt [Unknown]
  - Bradycardia [Unknown]
  - Intentional overdose [Unknown]
  - Somnolence [Unknown]
  - Hypotension [Unknown]

NARRATIVE: CASE EVENT DATE: 2016
